FAERS Safety Report 26125628 (Version 1)
Quarter: 2025Q4

REPORT INFORMATION
  Report Type: Report from Study
  Country: BR (occurrence: BR)
  Receive Date: 20251205
  Receipt Date: 20251205
  Transmission Date: 20260117
  Serious: Yes (Other)
  Sender: JOHNSON AND JOHNSON
  Company Number: BR-JNJFOC-20251202315

PATIENT
  Age: 32 Year
  Sex: Female
  Weight: 49 kg

DRUGS (2)
  1. INFLIXIMAB [Suspect]
     Active Substance: INFLIXIMAB
     Indication: Crohn^s disease
     Dosage: INITIALLY STARTED WITH 5 MG OF THE MEDICATION
     Route: 041
     Dates: start: 202208
  2. INFLIXIMAB [Suspect]
     Active Substance: INFLIXIMAB
     Route: 041
     Dates: start: 202208

REACTIONS (2)
  - Small intestinal stenosis [Not Recovered/Not Resolved]
  - Off label use [Unknown]
